FAERS Safety Report 14476956 (Version 1)
Quarter: 2018Q1

REPORT INFORMATION
  Report Type: Report from Study
  Country: US (occurrence: US)
  Receive Date: 20180201
  Receipt Date: 20180201
  Transmission Date: 20180509
  Serious: No
  Sender: FDA-Public Use
  Company Number: US-EXELIXIS-CABO-17008664

PATIENT
  Age: 51 Year
  Sex: Male

DRUGS (5)
  1. COMETRIQ [Suspect]
     Active Substance: CABOZANTINIB S-MALATE
     Indication: THYROID CANCER
     Dosage: 100 MG, QD
     Route: 048
     Dates: start: 20170318
  2. REMERON [Concomitant]
     Active Substance: MIRTAZAPINE
  3. COMETRIQ [Suspect]
     Active Substance: CABOZANTINIB S-MALATE
     Dosage: 20 MG, QD
     Route: 048
  4. PHOSLO [Concomitant]
     Active Substance: CALCIUM ACETATE
  5. RENVELA [Concomitant]
     Active Substance: SEVELAMER CARBONATE

REACTIONS (3)
  - Diarrhoea [Unknown]
  - Adverse drug reaction [Unknown]
  - Nausea [Unknown]

NARRATIVE: CASE EVENT DATE: 20170319
